FAERS Safety Report 12422509 (Version 1)
Quarter: 2016Q2

REPORT INFORMATION
  Report Type: Spontaneous
  Country: US (occurrence: US)
  Receive Date: 20160601
  Receipt Date: 20160601
  Transmission Date: 20160815
  Serious: No
  Sender: FDA-Public Use
  Company Number: US-HORIZON-BUP-0061-2016

PATIENT
  Age: 69 Year
  Sex: Female

DRUGS (3)
  1. LACTULOSE. [Concomitant]
     Active Substance: LACTULOSE
     Dosage: 30 ML TID
  2. CITRULLINE [Concomitant]
     Active Substance: CITRULLINE
  3. BUPHENYL [Suspect]
     Active Substance: SODIUM PHENYLBUTYRATE
     Indication: ORNITHINE TRANSCARBAMOYLASE DEFICIENCY
     Dosage: 12 TABLETS 3 TIMES A DAY
     Route: 048

REACTIONS (2)
  - Constipation [Unknown]
  - Retching [Unknown]
